FAERS Safety Report 4926491-5 (Version None)
Quarter: 2006Q1

REPORT INFORMATION
  Report Type: 
  Country: None (occurrence: None)
  Receive Date: 20060228
  Receipt Date: 20051130
  Transmission Date: 20060701
  Serious: No
  Sender: FDA-Public Use
  Company Number: US-GLAXOSMITHKLINE-A0585014A

PATIENT
  Age: 36 Year
  Sex: Male

DRUGS (1)
  1. LAMICTAL [Suspect]
     Indication: MAJOR DEPRESSION
     Route: 048
     Dates: start: 20050629, end: 20051201

REACTIONS (2)
  - RASH [None]
  - UPPER RESPIRATORY TRACT INFECTION [None]
